FAERS Safety Report 4962258-X (Version None)
Quarter: 2006Q2

REPORT INFORMATION
  Report Type: 
  Country: None (occurrence: None)
  Receive Date: 20060404
  Receipt Date: 20060327
  Transmission Date: 20061013
  Serious: Yes (Hospitalization)
  Sender: FDA-Public Use
  Company Number: PHEH2006US04035

PATIENT
  Age: 79 Year
  Sex: Male

DRUGS (10)
  1. DIOVAN [Suspect]
     Indication: HYPERTENSION
     Dosage: 80 MG, QD
     Route: 048
     Dates: start: 20060310
  2. HYDROCHLOROTHIAZIDE [Concomitant]
     Dosage: 25 MG, UNK
  3. ZANTAC [Concomitant]
     Dosage: 150 MG, BID
  4. TRICOR [Concomitant]
     Dosage: 145 MG, QD
  5. QUININE [Concomitant]
     Indication: MUSCLE SPASMS
     Dosage: 260 MG, UNK
  6. VYTORIN [Concomitant]
     Dosage: 10/80
  7. METAMUCIL [Concomitant]
  8. METOPROLOL [Concomitant]
  9. ASPIRIN [Concomitant]
  10. PLAVIX [Concomitant]
     Dosage: 75 MG, UNK

REACTIONS (4)
  - COUGH [None]
  - INSOMNIA [None]
  - PALPITATIONS [None]
  - STENT PLACEMENT [None]
